FAERS Safety Report 7219369-8 (Version None)
Quarter: 2011Q1

REPORT INFORMATION
  Report Type: 
  Country: None (occurrence: None)
  Receive Date: 20110111
  Receipt Date: 20110106
  Transmission Date: 20110831
  Serious: No
  Sender: FDA-Public Use
  Company Number: US-PFIZER INC-2011004147

PATIENT
  Sex: Male
  Weight: 82 kg

DRUGS (6)
  1. KLONOPIN [Concomitant]
     Dosage: UNK
  2. SOMA [Concomitant]
     Dosage: UNK
  3. CHANTIX [Suspect]
     Indication: SMOKING CESSATION THERAPY
     Dosage: 1 MG, 2X/DAY
     Route: 048
     Dates: start: 20101227
  4. DRISDOL [Concomitant]
     Dosage: UNK
  5. HYDROCODONE [Concomitant]
     Dosage: UNK
  6. CYMBALTA [Concomitant]
     Dosage: UNK

REACTIONS (2)
  - GASTRIC DISORDER [None]
  - ABNORMAL DREAMS [None]
